FAERS Safety Report 17502504 (Version 1)
Quarter: 2020Q1

REPORT INFORMATION
  Report Type: Spontaneous
  Country: IE (occurrence: IE)
  Receive Date: 20200305
  Receipt Date: 20200305
  Transmission Date: 20200409
  Serious: Yes (Other)
  Sender: FDA-Public Use
  Company Number: IE-MYLANLABS-2020M1023807

PATIENT
  Age: 51 Year
  Sex: Male

DRUGS (9)
  1. RISPERIDON [Concomitant]
     Active Substance: RISPERIDONE
     Dosage: 6 MILLIGRAM, QD
  2. CLOZARIL [Suspect]
     Active Substance: CLOZAPINE
     Dosage: 350 MILLIGRAM, QD
     Route: 048
  3. CLOZARIL [Suspect]
     Active Substance: CLOZAPINE
     Dosage: 300 MILLIGRAM, QD
     Route: 048
  4. ESOMEPRAZOLE. [Concomitant]
     Active Substance: ESOMEPRAZOLE MAGNESIUM
     Dosage: 40 MILLIGRAM, QD
  5. CLOZARIL [Suspect]
     Active Substance: CLOZAPINE
     Dosage: 350 MILLIGRAM, QD
     Route: 048
  6. LIPITOR [Concomitant]
     Active Substance: ATORVASTATIN CALCIUM
     Dosage: 10 MILLIGRAM, QD
  7. CLOZARIL [Suspect]
     Active Substance: CLOZAPINE
     Indication: SCHIZOPHRENIA
     Dosage: UNK
     Route: 048
     Dates: start: 20100531
  8. ATACOR [Concomitant]
     Active Substance: ATORVASTATIN CALCIUM
     Dosage: 25 MILLIGRAM, QD
  9. FYBOGEL [Concomitant]
     Active Substance: PLANTAGO OVATA SEED
     Dosage: UNK

REACTIONS (2)
  - Antipsychotic drug level increased [Not Recovered/Not Resolved]
  - Schizophrenia [Unknown]

NARRATIVE: CASE EVENT DATE: 201912
